FAERS Safety Report 5725911-6 (Version None)
Quarter: 2008Q2

REPORT INFORMATION
  Report Type: 
  Country: None (occurrence: None)
  Receive Date: 20080429
  Receipt Date: 20080414
  Transmission Date: 20081010
  Serious: Yes (Death, Life-Threatening, Hospitalization, Other)
  Sender: FDA-Public Use
  Company Number: 47470

PATIENT
  Age: 56 Year
  Sex: Female

DRUGS (1)
  1. COLCHICUM JTL LIQ [Suspect]
     Dosage: 2MGX1X WEEKLY FOR 6 WEEKS

REACTIONS (6)
  - CHEST PAIN [None]
  - DIARRHOEA [None]
  - DRUG DISPENSING ERROR [None]
  - DRUG TOXICITY [None]
  - INFUSION RELATED REACTION [None]
  - VOMITING [None]
